FAERS Safety Report 7416280-4 (Version None)
Quarter: 2011Q2

REPORT INFORMATION
  Report Type: 
  Country: None (occurrence: None)
  Receive Date: 20110414
  Receipt Date: 20110407
  Transmission Date: 20111010
  Serious: Yes (Hospitalization)
  Sender: FDA-Public Use
  Company Number: IN-ELI_LILLY_AND_COMPANY-IN201103007012

PATIENT
  Age: 48 Year
  Sex: Female

DRUGS (2)
  1. XIGRIS [Suspect]
     Indication: SEPTIC SHOCK
     Dosage: UNK, UNKNOWN
     Route: 065
     Dates: start: 20110315, end: 20110317
  2. ANTIBIOTICS [Concomitant]
     Dosage: UNK, UNKNOWN
     Route: 065

REACTIONS (2)
  - INCORRECT DOSE ADMINISTERED [None]
  - GASTROINTESTINAL HAEMORRHAGE [None]
